FAERS Safety Report 17136005 (Version 1)
Quarter: 2019Q4

REPORT INFORMATION
  Report Type: Spontaneous
  Country: US (occurrence: US)
  Receive Date: 20191210
  Receipt Date: 20191210
  Transmission Date: 20200122
  Serious: No
  Sender: FDA-Public Use
  Company Number: US-JNJFOC-20191204710

PATIENT
  Age: 70 Year
  Sex: Male

DRUGS (1)
  1. INVOKANA [Suspect]
     Active Substance: CANAGLIFLOZIN
     Indication: TYPE 2 DIABETES MELLITUS
     Route: 048
     Dates: start: 20191127, end: 20191130

REACTIONS (3)
  - Pollakiuria [Unknown]
  - Weight decreased [Unknown]
  - Micturition urgency [Recovered/Resolved]

NARRATIVE: CASE EVENT DATE: 20191127
